FAERS Safety Report 8896520 (Version 1)
Quarter: 2012Q4

REPORT INFORMATION
  Report Type: Spontaneous
  Country: US (occurrence: None)
  Receive Date: 20121107
  Receipt Date: 20121107
  Transmission Date: 20130627
  Serious: Yes (Life-Threatening)
  Sender: FDA-Public Use
  Company Number: None

PATIENT
  Age: 72 Year
  Sex: Male
  Weight: 71.8 kg

DRUGS (2)
  1. VALSARTAN [Suspect]
     Indication: CONGESTIVE HEART FAILURE
     Dosage: MG EVERY DAY PO
     Route: 048
     Dates: start: 20121010, end: 20121105
  2. VALSARTAN [Suspect]
     Indication: CORONARY ARTERY DISEASE
     Dosage: MG EVERY DAY PO
     Route: 048
     Dates: start: 20121010, end: 20121105

REACTIONS (1)
  - Angioedema [None]
